FAERS Safety Report 25449491 (Version 1)
Quarter: 2025Q2

REPORT INFORMATION
  Report Type: Spontaneous
  Country: US (occurrence: US)
  Receive Date: 20250618
  Receipt Date: 20250618
  Transmission Date: 20250717
  Serious: No
  Sender: TARO
  Company Number: US-TARO PHARMACEUTICALS USA INC.-2025TAR00038

PATIENT
  Age: 4 Year
  Weight: 16.327 kg

DRUGS (1)
  1. FEVERALL [Suspect]
     Active Substance: ACETAMINOPHEN
     Indication: Product used for unknown indication
     Route: 054
     Dates: start: 20241230

REACTIONS (2)
  - Product prescribing error [Unknown]
  - Product use issue [Unknown]
